FAERS Safety Report 6231408-X (Version None)
Quarter: 2009Q2

REPORT INFORMATION
  Report Type: 
  Country: None (occurrence: None)
  Receive Date: 20090616
  Receipt Date: 20090611
  Transmission Date: 20091009
  Serious: Yes (Hospitalization)
  Sender: FDA-Public Use
  Company Number: AU-WYE-G03830409

PATIENT
  Age: 3 Year
  Sex: Male

DRUGS (1)
  1. DIMETAPP CHILDRENS IBUPROFEN PAIN AND FEVER RELIEF [Suspect]
     Dosage: 200ML ENTIRE BOTTLE
     Route: 048

REACTIONS (4)
  - ACCIDENTAL DRUG INTAKE BY CHILD [None]
  - ACCIDENTAL OVERDOSE [None]
  - GENERAL PHYSICAL HEALTH DETERIORATION [None]
  - PRODUCT QUALITY ISSUE [None]
